FAERS Safety Report 4348351-3 (Version None)
Quarter: 2004Q1

REPORT INFORMATION
  Report Type: 
  Country: None (occurrence: None)
  Receive Date: 20040325
  Receipt Date: 20040224
  Transmission Date: 20041129
  Serious: No
  Sender: FDA-Public Use
  Company Number: USA040259307

PATIENT
  Age: 68 Year
  Sex: Female
  Weight: 56 kg

DRUGS (7)
  1. FORTEO [Suspect]
     Indication: OSTEOPOROSIS
     Dosage: 20 UG/DAY
     Dates: start: 20040104
  2. COUMADIN [Concomitant]
  3. HYDROCHLOROTHIAZIDE [Concomitant]
  4. SYNTHROID [Concomitant]
  5. NORVASC [Concomitant]
  6. METHAPRED (METHYLPREDNISOLONE SODIUM SUCCINATE) [Concomitant]
  7. COMBIVENT [Concomitant]

REACTIONS (3)
  - DYSPEPSIA [None]
  - FLATULENCE [None]
  - LOOSE STOOLS [None]
